FAERS Safety Report 4848405-9 (Version None)
Quarter: 2005Q4

REPORT INFORMATION
  Report Type: 
  Country: None (occurrence: None)
  Receive Date: 20051208
  Receipt Date: 20050907
  Transmission Date: 20060501
  Serious: Yes (Hospitalization)
  Sender: FDA-Public Use
  Company Number: FR-ROCHE-416923

PATIENT
  Age: 65 Year
  Sex: Male

DRUGS (18)
  1. DACLIZUMAB [Suspect]
     Route: 042
     Dates: start: 20050416, end: 20050416
  2. CELLCEPT [Suspect]
     Route: 042
     Dates: start: 20050415, end: 20050417
  3. CELLCEPT [Suspect]
     Route: 048
     Dates: start: 20050418, end: 20050525
  4. CELLCEPT [Suspect]
     Dosage: ADVERSE EVENT/TOXICITY.
     Route: 048
     Dates: start: 20050526, end: 20050701
  5. TACROLIMUS [Suspect]
     Dosage: ADJUSTMENT TO REACH PREDEFINED TARGET LEVELS.
     Route: 048
     Dates: start: 20050419
  6. METHYLPREDNISOLONE [Suspect]
     Dosage: TAPER ACCORDING TO LOCAL PROTOCOL.
     Route: 065
     Dates: start: 20050415, end: 20050421
  7. PREDNISONE [Suspect]
     Dosage: TAPER ACCORDING TO LOCAL PROTOCOL.
     Route: 065
     Dates: start: 20050422
  8. NEFOPAM [Concomitant]
     Indication: PROPHYLAXIS
     Dates: start: 20050415, end: 20050417
  9. PARACETAMOL [Concomitant]
     Indication: PROPHYLAXIS
     Dates: start: 20050415, end: 20050420
  10. OMEPRAZOLE [Concomitant]
     Indication: PROPHYLAXIS
     Dates: start: 20050415, end: 20050803
  11. URAPIDIL [Concomitant]
     Indication: HYPERTENSION
     Dates: start: 20050415, end: 20050420
  12. TAZOCILLINE [Concomitant]
     Indication: PROPHYLAXIS
     Dates: start: 20050415, end: 20050418
  13. AMLODIPINE [Concomitant]
     Indication: HYPERTENSION
     Dates: start: 20050418, end: 20050511
  14. ACEBUTOLOL [Concomitant]
     Indication: HYPERTENSION
     Dates: start: 20050419
  15. BROMAZEPAM [Concomitant]
     Indication: INSOMNIA
     Dates: start: 20050417, end: 20050511
  16. DUPHALAC [Concomitant]
     Indication: CONSTIPATION
     Dates: start: 20050423, end: 20050425
  17. PHLOROGLUCINOL [Concomitant]
     Dates: start: 20050423, end: 20050425
  18. TRIMEBUTINE [Concomitant]
     Dates: start: 20050422, end: 20050425

REACTIONS (2)
  - DISEASE RECURRENCE [None]
  - HEPATITIS C [None]
